FAERS Safety Report 25688507 (Version 1)
Quarter: 2025Q3

REPORT INFORMATION
  Report Type: Spontaneous
  Country: US (occurrence: US)
  Receive Date: 20250818
  Receipt Date: 20250818
  Transmission Date: 20251020
  Serious: No
  Sender: BRISTOL-MYERS SQUIBB COMPANY
  Company Number: US-BRISTOL-MYERS SQUIBB COMPANY-2025-113884

PATIENT
  Sex: Male

DRUGS (1)
  1. ELIQUIS [Suspect]
     Active Substance: APIXABAN
     Indication: Atrial fibrillation

REACTIONS (6)
  - Fatigue [Unknown]
  - Dizziness [Unknown]
  - Contusion [Unknown]
  - Gingival bleeding [Unknown]
  - Blood urine present [Unknown]
  - Haemorrhage [Unknown]
